FAERS Safety Report 11881685 (Version 1)
Quarter: 2015Q4

REPORT INFORMATION
  Report Type: Spontaneous
  Country: US (occurrence: US)
  Receive Date: 20151231
  Receipt Date: 20151231
  Transmission Date: 20160305
  Serious: No
  Sender: FDA-Public Use
  Company Number: US-PFIZER INC-2015427247

PATIENT
  Age: 58 Year
  Sex: Female
  Weight: 85.71 kg

DRUGS (22)
  1. SKELAXIN [Concomitant]
     Active Substance: METAXALONE
     Dosage: UNK UNK, 3X/DAY (TAKE 1/2 TO 1 TABLET)
     Dates: start: 20151106
  2. XANAX [Concomitant]
     Active Substance: ALPRAZOLAM
     Dosage: 1 MG, 4 TIMES PER DAY AS NEEDED
     Route: 048
     Dates: start: 20150902
  3. HALCION [Concomitant]
     Active Substance: TRIAZOLAM
     Dosage: 0.25 MG, AS NEEDED (ONCE DAILY AT BEDTIME)
     Route: 048
     Dates: start: 20150929
  4. LYRICA [Suspect]
     Active Substance: PREGABALIN
     Indication: PAIN
     Dosage: 100 MG, 3 TIMES PER DAY AS NEEDED
  5. NEXIUM [Concomitant]
     Active Substance: ESOMEPRAZOLE MAGNESIUM
     Dosage: 40 MG, 1X/DAY
     Route: 048
     Dates: start: 20150929
  6. NEXIUM [Concomitant]
     Active Substance: ESOMEPRAZOLE MAGNESIUM
     Dosage: 40 MG, 1X/DAY
     Route: 048
     Dates: start: 20150902
  7. CRESTOR [Concomitant]
     Active Substance: ROSUVASTATIN CALCIUM
     Dosage: 10 MG, 1X/DAY
     Route: 048
     Dates: start: 20150902
  8. WELLBUTRIN SR [Concomitant]
     Active Substance: BUPROPION HYDROCHLORIDE
     Dosage: 150 MG, 2X/DAY
     Route: 048
     Dates: start: 20150902
  9. MS CONTIN [Suspect]
     Active Substance: MORPHINE SULFATE
     Dosage: 15 MG, 2X/DAY(EVERY 12 HOURS FOR 14 DAYS)
     Route: 048
     Dates: start: 20151106
  10. ADDERALL [Concomitant]
     Active Substance: AMPHETAMINE ASPARTATE\AMPHETAMINE SULFATE\DEXTROAMPHETAMINE SACCHARATE\DEXTROAMPHETAMINE SULFATE
     Dosage: 30 MG, 2X/DAY(BEFORE BREAKFAST AND AT NOON)
     Route: 048
     Dates: start: 20150902
  11. METFORMIN [Concomitant]
     Active Substance: METFORMIN HYDROCHLORIDE
     Dosage: 1000 MG, 2X/DAY(WITH MORNING AND EVENING MEALS)
     Route: 048
     Dates: start: 20151106
  12. XANAX [Concomitant]
     Active Substance: ALPRAZOLAM
     Dosage: 1 MG, 4 TIMES PER DAY AS NEEDED
     Route: 048
     Dates: start: 20151106
  13. CYCLOBENZAPRINE [Concomitant]
     Active Substance: CYCLOBENZAPRINE
     Dosage: 10 MG, 3X/DAY
     Route: 048
     Dates: start: 20150902, end: 20150929
  14. LAMICTAL [Concomitant]
     Active Substance: LAMOTRIGINE
     Dosage: 150 MG, 1X/DAY
     Route: 048
     Dates: start: 20150902
  15. MS CONTIN [Suspect]
     Active Substance: MORPHINE SULFATE
     Dosage: 15 MG, 2X/DAY(EVERY 12 HOURS FOR 14 DAYS)
     Route: 048
     Dates: start: 20150902
  16. METFORMIN [Concomitant]
     Active Substance: METFORMIN HYDROCHLORIDE
     Dosage: 1000 MG, 2X/DAY(WITH MORNING AND EVENING MEALS)
     Route: 048
  17. DICLOFENAC SODIUM. [Concomitant]
     Active Substance: DICLOFENAC SODIUM
     Dosage: 75 MG, 2X/DAY
     Route: 048
     Dates: start: 20150902
  18. LYRICA [Suspect]
     Active Substance: PREGABALIN
     Dosage: 100 MG, 3 TIMES PER DAY AS NEEDED
     Route: 048
     Dates: start: 20151006
  19. ADDERALL [Concomitant]
     Active Substance: AMPHETAMINE ASPARTATE\AMPHETAMINE SULFATE\DEXTROAMPHETAMINE SACCHARATE\DEXTROAMPHETAMINE SULFATE
     Dosage: 30 MG, 2X/DAY(BEFORE BREAKFAST AND AT NOON)
     Route: 048
     Dates: start: 20151106
  20. PAXIL [Concomitant]
     Active Substance: PAROXETINE HYDROCHLORIDE
     Dosage: 30 MG, 1X/DAY
     Route: 048
     Dates: start: 20150902
  21. KEFLEX [Concomitant]
     Active Substance: CEPHALEXIN
     Dosage: 500 MG, 2X/DAY(EVERY 12 HOURS)
     Route: 048
     Dates: start: 20151106
  22. HYDROCHLOROTHIAZIDE, LISINOPRIL [Concomitant]
     Active Substance: HYDROCHLOROTHIAZIDE\LISINOPRIL
     Dosage: UNK(LISINOPRIL- 20MG AND HYDROCHLOROTHIAZIDE- 25 MG), 1X/DAY
     Route: 048
     Dates: start: 20150902

REACTIONS (11)
  - Insomnia [Unknown]
  - Arthralgia [Unknown]
  - Paraesthesia [Unknown]
  - Palpitations [Unknown]
  - Panic attack [Unknown]
  - Drug effect incomplete [Unknown]
  - Hypoaesthesia [Unknown]
  - Tenderness [Unknown]
  - Constipation [Unknown]
  - Anxiety [Unknown]
  - Depression [Unknown]
